FAERS Safety Report 23972678 (Version 1)
Quarter: 2024Q2

REPORT INFORMATION
  Report Type: Spontaneous
  Country: US (occurrence: None)
  Receive Date: 20240613
  Receipt Date: 20240613
  Transmission Date: 20240715
  Serious: Yes (Death)
  Sender: FDA-Public Use
  Company Number: None

PATIENT
  Age: 88 Year
  Sex: Female
  Weight: 72.45 kg

DRUGS (12)
  1. POMALYST [Suspect]
     Active Substance: POMALIDOMIDE
     Indication: Plasma cell myeloma
     Dosage: FREQUENCY : DAILY;?
     Route: 048
     Dates: start: 20240312
  2. PANTOPRAZOLE [Concomitant]
     Active Substance: PANTOPRAZOLE
  3. BUMETANIDE [Concomitant]
     Active Substance: BUMETANIDE
  4. K tab 20meq [Concomitant]
  5. RENVELA [Concomitant]
     Active Substance: SEVELAMER CARBONATE
  6. ONDANSETRON [Concomitant]
     Active Substance: ONDANSETRON
  7. Acyclovir 200mg [Concomitant]
  8. ELIQUIS [Concomitant]
     Active Substance: APIXABAN
  9. METOPROLOL [Concomitant]
     Active Substance: METOPROLOL
  10. Olmesartan 8mg [Concomitant]
  11. Pregablin 25mg [Concomitant]
  12. SEVELAMER [Concomitant]
     Active Substance: SEVELAMER

REACTIONS (1)
  - Death [None]

NARRATIVE: CASE EVENT DATE: 20240612
